FAERS Safety Report 6763650-3 (Version None)
Quarter: 2010Q2

REPORT INFORMATION
  Report Type: 
  Country: None (occurrence: None)
  Receive Date: 20100610
  Receipt Date: 20100603
  Transmission Date: 20101027
  Serious: Yes (Hospitalization)
  Sender: FDA-Public Use
  Company Number: FR-MPIJNJ-2010-02978

PATIENT

DRUGS (4)
  1. VELCADE [Suspect]
     Indication: MULTIPLE MYELOMA
     Dosage: 2 MG, UNK
     Dates: start: 20100527, end: 20100527
  2. VELCADE [Suspect]
     Dosage: 2 G, UNK
     Dates: start: 20100530, end: 20100530
  3. VELCADE [Suspect]
     Dosage: 2 G, UNK
     Dates: start: 20100531, end: 20100531
  4. DEXAMETHASONE [Concomitant]

REACTIONS (6)
  - CONSTIPATION [None]
  - MALAISE [None]
  - NAUSEA [None]
  - ORTHOSTATIC HYPOTENSION [None]
  - OVERDOSE [None]
  - VOMITING [None]
